FAERS Safety Report 4334653-3 (Version None)
Quarter: 2004Q1

REPORT INFORMATION
  Report Type: 
  Country: None (occurrence: None)
  Receive Date: 20040329
  Receipt Date: 20031212
  Transmission Date: 20041129
  Serious: No
  Sender: FDA-Public Use
  Company Number: 03P-163-0244675-00

PATIENT
  Age: 78 Year
  Sex: Female

DRUGS (3)
  1. HUMIRA [Suspect]
     Indication: RHEUMATOID ARTHRITIS
     Dosage: 40 MG, 1 IN 2 WK, SUBCUTANEOUS
     Route: 058
     Dates: start: 20030101, end: 20030101
  2. OXYGEN [Concomitant]
  3. OTHER MEDICATION NAMES NOT AVAILABLE [Concomitant]

REACTIONS (2)
  - MEMORY IMPAIRMENT [None]
  - MENTAL IMPAIRMENT [None]
